FAERS Safety Report 19264390 (Version 1)
Quarter: 2021Q2

REPORT INFORMATION
  Report Type: Spontaneous
  Country: US (occurrence: US)
  Receive Date: 20210516
  Receipt Date: 20210516
  Transmission Date: 20210717
  Serious: No
  Sender: FDA-Public Use
  Company Number: None

PATIENT
  Sex: Female
  Weight: 74.84 kg

DRUGS (1)
  1. GUAIFENESIN ER TABLETS 1200 MG [Suspect]
     Active Substance: GUAIFENESIN
     Indication: SECRETION DISCHARGE
     Route: 048
     Dates: start: 20210504, end: 20210506

REACTIONS (2)
  - Product quality issue [None]
  - Nightmare [None]
